FAERS Safety Report 23159777 (Version 1)
Quarter: 2023Q4

REPORT INFORMATION
  Report Type: Report from Study
  Country: US (occurrence: US)
  Receive Date: 20231108
  Receipt Date: 20231108
  Transmission Date: 20240109
  Serious: Yes (Other)
  Sender: FDA-Public Use
  Company Number: US-MYLANLABS-2023M1117636

PATIENT
  Age: 7 Year
  Sex: Female

DRUGS (16)
  1. CYCLOSPORINE [Suspect]
     Active Substance: CYCLOSPORINE
     Indication: Nephrotic syndrome
     Dosage: UNK
     Route: 065
  2. CYCLOSPORINE [Suspect]
     Active Substance: CYCLOSPORINE
     Indication: Glomerulonephritis minimal lesion
  3. PREDNISONE [Suspect]
     Active Substance: PREDNISONE
     Indication: Nephrotic syndrome
     Dosage: UNK
     Route: 065
  4. PREDNISONE [Suspect]
     Active Substance: PREDNISONE
     Indication: Glomerulonephritis minimal lesion
  5. TACROLIMUS [Suspect]
     Active Substance: TACROLIMUS
     Indication: Nephrotic syndrome
     Dosage: UNK
     Route: 065
  6. TACROLIMUS [Suspect]
     Active Substance: TACROLIMUS
     Indication: Glomerulonephritis minimal lesion
  7. TACROLIMUS [Suspect]
     Active Substance: TACROLIMUS
     Indication: Focal segmental glomerulosclerosis
  8. PIOGLITAZONE [Suspect]
     Active Substance: PIOGLITAZONE
     Indication: Nephrotic syndrome
     Dosage: 30 MILLIGRAM, QD
     Route: 048
  9. PIOGLITAZONE [Suspect]
     Active Substance: PIOGLITAZONE
     Indication: Focal segmental glomerulosclerosis
  10. PIOGLITAZONE [Suspect]
     Active Substance: PIOGLITAZONE
     Indication: Glomerulonephritis minimal lesion
  11. METFORMIN [Concomitant]
     Active Substance: METFORMIN HYDROCHLORIDE
     Indication: Diabetes mellitus
     Dosage: UNK
     Route: 065
  12. GLIPIZIDE [Concomitant]
     Active Substance: GLIPIZIDE
     Indication: Diabetes mellitus
     Dosage: UNK
     Route: 065
  13. INSULIN NOS [Concomitant]
     Active Substance: INSULIN NOS
     Indication: Diabetes mellitus
     Dosage: UNK
     Route: 065
  14. MYCOPHENOLATE MOFETIL [Concomitant]
     Active Substance: MYCOPHENOLATE MOFETIL
     Indication: Nephrotic syndrome
     Dosage: UNK
     Route: 065
  15. MYCOPHENOLATE MOFETIL [Concomitant]
     Active Substance: MYCOPHENOLATE MOFETIL
     Indication: Focal segmental glomerulosclerosis
  16. MYCOPHENOLATE MOFETIL [Concomitant]
     Active Substance: MYCOPHENOLATE MOFETIL
     Indication: Glomerulonephritis minimal lesion

REACTIONS (4)
  - Steroid dependence [Unknown]
  - Drug dependence [Unknown]
  - Toxicity to various agents [Unknown]
  - Off label use [Unknown]
